FAERS Safety Report 4555033-1 (Version None)
Quarter: 2004Q4

REPORT INFORMATION
  Report Type: 
  Country: None (occurrence: None)
  Receive Date: 20041217
  Receipt Date: 20040806
  Transmission Date: 20050328
  Serious: No
  Sender: FDA-Public Use
  Company Number: 2004-BP-03751BP

PATIENT
  Age: 65 Year
  Sex: Male

DRUGS (17)
  1. SPIRIVA [Suspect]
     Indication: ASTHMA
     Dosage: 18 MCG (18 MCG), IH
     Route: 055
     Dates: start: 20040407, end: 20040412
  2. SPIRIVA [Suspect]
     Indication: CHRONIC OBSTRUCTIVE AIRWAYS DISEASE
     Dosage: 18 MCG (18 MCG), IH
     Route: 055
     Dates: start: 20040407, end: 20040412
  3. SPIRIVA [Suspect]
     Indication: EMPHYSEMA
     Dosage: 18 MCG (18 MCG), IH
     Route: 055
     Dates: start: 20040407, end: 20040412
  4. SPIRIVA [Suspect]
     Indication: ASTHMA
     Dosage: 18 MCG (18 MCG), IH
     Route: 055
     Dates: start: 20040428, end: 20040510
  5. SPIRIVA [Suspect]
     Indication: CHRONIC OBSTRUCTIVE AIRWAYS DISEASE
     Dosage: 18 MCG (18 MCG), IH
     Route: 055
     Dates: start: 20040428, end: 20040510
  6. SPIRIVA [Suspect]
     Indication: EMPHYSEMA
     Dosage: 18 MCG (18 MCG), IH
     Route: 055
     Dates: start: 20040428, end: 20040510
  7. SPIRIVA [Suspect]
  8. FORADIL [Concomitant]
  9. PREDNISONE [Concomitant]
  10. PRINIVIL [Concomitant]
  11. PEPCID [Concomitant]
  12. ACTIFED [Concomitant]
  13. OXYGEN (OXYGEN) [Concomitant]
  14. PROVENTIL (SALBUTAMOL SULFATE) [Concomitant]
  15. ATROVENT [Concomitant]
  16. PULMICORT [Concomitant]
  17. SINGULAIR [Concomitant]

REACTIONS (3)
  - CHEST PAIN [None]
  - PULMONARY FUNCTION TEST DECREASED [None]
  - RESPIRATORY RATE INCREASED [None]
